FAERS Safety Report 17481576 (Version 2)
Quarter: 2020Q1

REPORT INFORMATION
  Report Type: Report from Study
  Country: FR (occurrence: FR)
  Receive Date: 20200302
  Receipt Date: 20200305
  Transmission Date: 20200409
  Serious: Yes (Death, Life-Threatening, Hospitalization)
  Sender: FDA-Public Use
  Company Number: FR-CLTHLHP-2020FR019997

PATIENT

DRUGS (2)
  1. TRUXIMA [Suspect]
     Active Substance: RITUXIMAB-ABBS
     Dosage: 700 MG (375 MG/M2)
     Route: 042
     Dates: start: 20190529, end: 20190529
  2. TRUXIMA [Suspect]
     Active Substance: RITUXIMAB-ABBS
     Indication: DIFFUSE LARGE B-CELL LYMPHOMA
     Dosage: 700 MG (375 MG/M2)
     Route: 042
     Dates: start: 20190529, end: 20190529

REACTIONS (3)
  - Pulmonary embolism [Fatal]
  - Myocardial ischaemia [Recovering/Resolving]
  - Underdose [Unknown]

NARRATIVE: CASE EVENT DATE: 20190529
